FAERS Safety Report 17170512 (Version 2)
Quarter: 2020Q1

REPORT INFORMATION
  Report Type: Report from Study
  Country: IE (occurrence: IE)
  Receive Date: 20191218
  Receipt Date: 20200220
  Transmission Date: 20200409
  Serious: Yes (Other)
  Sender: FDA-Public Use
  Company Number: IE-JNJFOC-20191213352

PATIENT
  Sex: Male

DRUGS (5)
  1. STELARA [Suspect]
     Active Substance: USTEKINUMAB
     Indication: PRODUCT USED FOR UNKNOWN INDICATION
     Route: 058
     Dates: start: 20170526
  2. CANDESARTAN CILEXTIL [Concomitant]
     Active Substance: CANDESARTAN CILEXETIL
     Route: 050
  3. MORPHINE [Concomitant]
     Active Substance: MORPHINE
  4. FEXODENADINE [Concomitant]
     Route: 050
  5. ATORVASTATIN [Concomitant]
     Active Substance: ATORVASTATIN
     Route: 050

REACTIONS (1)
  - Neoplasm malignant [Not Recovered/Not Resolved]
